FAERS Safety Report 20154176 (Version 1)
Quarter: 2021Q4

REPORT INFORMATION
  Report Type: Spontaneous
  Country: JP (occurrence: JP)
  Receive Date: 20211207
  Receipt Date: 20211207
  Transmission Date: 20220303
  Serious: Yes (Death)
  Sender: FDA-Public Use
  Company Number: JP-LOTUS-2021-LOTUS-048378

PATIENT
  Age: 35 Year
  Sex: Male

DRUGS (1)
  1. METHOTREXATE [Suspect]
     Active Substance: METHOTREXATE
     Indication: Congenital melanosis

REACTIONS (3)
  - Congenital melanosis [Fatal]
  - Drug ineffective [Fatal]
  - Condition aggravated [Fatal]
